FAERS Safety Report 23540613 (Version 1)
Quarter: 2024Q1

REPORT INFORMATION
  Report Type: Spontaneous
  Country: US (occurrence: US)
  Receive Date: 20240219
  Receipt Date: 20240219
  Transmission Date: 20240410
  Serious: No
  Sender: FDA-Public Use
  Company Number: US-Stemline Therapeutics, Inc.-2023ST004901

PATIENT
  Age: 69 Year
  Sex: Female

DRUGS (2)
  1. ORSERDU [Suspect]
     Active Substance: ELACESTRANT
     Indication: Product used for unknown indication
     Route: 048
     Dates: start: 20230822
  2. ORSERDU [Suspect]
     Active Substance: ELACESTRANT
     Dosage: 172 MG ONCE A DAY, WITH FOOD IN THE AFTERNOON
     Route: 048
     Dates: start: 20230822

REACTIONS (3)
  - Nasopharyngitis [Unknown]
  - Dysphonia [Unknown]
  - Liver disorder [Unknown]
